FAERS Safety Report 4853801-X (Version None)
Quarter: 2005Q4

REPORT INFORMATION
  Report Type: 
  Country: None (occurrence: None)
  Receive Date: 20051213
  Receipt Date: 20051130
  Transmission Date: 20060501
  Serious: Yes (Hospitalization)
  Sender: FDA-Public Use
  Company Number: US-2005-010371

PATIENT
  Age: 74 Year
  Sex: Female
  Weight: 50 kg

DRUGS (13)
  1. BETASERON [Suspect]
     Indication: MULTIPLE SCLEROSIS
     Dosage: 8 MIU, EVERY 2D, SUBCUTANEOUS
     Route: 058
     Dates: start: 20010529
  2. OSCAL [Concomitant]
  3. FOSAMAX [Concomitant]
  4. FERROUS SULFATE TAB [Concomitant]
  5. NORVASC/DEN/(AMLODIPINE BESILATE) [Concomitant]
  6. TYLENOL [Concomitant]
  7. BACLOFEN [Concomitant]
  8. AMANTADINE (AMANTANDINE) [Concomitant]
  9. PROVIGIL [Concomitant]
  10. GLUCOSAMINE W/CHONDROITIN (GLUCOSAMINE, CHLONDROTIN SULFATE) [Concomitant]
  11. HYDROCHLOROTHIAZIDE [Concomitant]
  12. METAMUCIL (PLANTAGO OVATA) [Concomitant]
  13. MULTIPLE VITAMINS (RETINOL) [Concomitant]

REACTIONS (7)
  - BALANCE DISORDER [None]
  - FALL [None]
  - GASTROINTESTINAL HAEMORRHAGE [None]
  - GASTROOESOPHAGEAL REFLUX DISEASE [None]
  - HIATUS HERNIA [None]
  - IRON DEFICIENCY ANAEMIA [None]
  - PELVIC FRACTURE [None]
